FAERS Safety Report 6708572-9 (Version None)
Quarter: 2010Q2

REPORT INFORMATION
  Report Type: 
  Country: None (occurrence: None)
  Receive Date: 20100503
  Receipt Date: 20080925
  Transmission Date: 20101027
  Serious: Yes (Other)
  Sender: FDA-Public Use
  Company Number: DE-BAYER-200830931GPV

PATIENT
  Sex: Male

DRUGS (2)
  1. ASPIRIN [Suspect]
     Indication: DRUG USE FOR UNKNOWN INDICATION
     Dosage: 6-7 TABLETS
     Route: 048
  2. ASPIRIN [Suspect]
     Dosage: 6-7 TABLETS
     Route: 048

REACTIONS (4)
  - ADVERSE EVENT [None]
  - AGGRESSION [None]
  - DISINHIBITION [None]
  - LIBIDO INCREASED [None]
